FAERS Safety Report 13023507 (Version 7)
Quarter: 2018Q2

REPORT INFORMATION
  Report Type: Report from Study
  Country: FR (occurrence: FR)
  Receive Date: 20161213
  Receipt Date: 20180607
  Transmission Date: 20180711
  Serious: Yes (Other)
  Sender: FDA-Public Use
  Company Number: FR-SA-2016SA098483

PATIENT
  Age: 61 Year
  Sex: Female
  Weight: 76 kg

DRUGS (9)
  1. ALIROCUMAB [Suspect]
     Active Substance: ALIROCUMAB
     Indication: HYPERCHOLESTEROLAEMIA
     Dosage: 1 ML,QOW
     Route: 058
     Dates: start: 20151218, end: 20160506
  2. TRIATEC [RAMIPRIL] [Concomitant]
     Indication: HYPERTENSION
     Dosage: 5 MG,QD (EVERY MORNING)
     Route: 048
     Dates: start: 20141113, end: 20160613
  3. VERAPAMIL [Concomitant]
     Active Substance: VERAPAMIL HYDROCHLORIDE
     Indication: CARDIOMYOPATHY
     Dosage: 40 MG,TID
     Route: 048
     Dates: start: 20150224
  4. SPIRONOLACTONE. [Concomitant]
     Active Substance: SPIRONOLACTONE
     Indication: HYPERTENSION
     Dosage: 12.5 MG,QD EVERY MORNING
     Route: 048
     Dates: start: 20141113
  5. TRIATEC [RAMIPRIL] [Concomitant]
     Dosage: 2.5 MG,QD
     Route: 048
     Dates: start: 20160614
  6. ISOSORBIDE MONONITRATE. [Concomitant]
     Active Substance: ISOSORBIDE MONONITRATE
     Indication: CARDIOMYOPATHY
     Dosage: 1PUFF, PRN
     Route: 061
     Dates: start: 20141113
  7. EUPANTOL [Concomitant]
     Active Substance: PANTOPRAZOLE SODIUM
     Indication: GASTRITIS
     Dosage: 20 MG,QD
     Route: 048
     Dates: start: 20141224
  8. KARDEGIC [Concomitant]
     Active Substance: ASPIRIN DL-LYSINE
     Indication: CARDIOMYOPATHY
     Dosage: 75 MG,QM (ONCE A MONTH)
     Route: 048
     Dates: start: 20150618
  9. ALIROCUMAB [Suspect]
     Active Substance: ALIROCUMAB
     Dosage: 1 ML,1X
     Route: 058
     Dates: start: 20160829, end: 20160829

REACTIONS (1)
  - Chronic hepatitis [Recovering/Resolving]

NARRATIVE: CASE EVENT DATE: 201603
